FAERS Safety Report 10682574 (Version 2)
Quarter: 2015Q1

REPORT INFORMATION
  Report Type: Spontaneous
  Country: DE (occurrence: DE)
  Receive Date: 20141230
  Receipt Date: 20150129
  Transmission Date: 20150720
  Serious: Yes (Hospitalization, Other)
  Sender: FDA-Public Use
  Company Number: DE-UCBSA-2014023271

PATIENT
  Age: 63 Year
  Sex: Female

DRUGS (2)
  1. LEVETIRACETAM. [Suspect]
     Active Substance: LEVETIRACETAM
     Indication: STATUS EPILEPTICUS
     Dosage: 3000 MG, ONCE DAILY (QD)
     Route: 042
  2. LORAZEPAM. [Concomitant]
     Active Substance: LORAZEPAM
     Indication: STATUS EPILEPTICUS
     Dosage: 4 MG, UNK

REACTIONS (5)
  - Status epilepticus [Recovered/Resolved]
  - Cerebral haemorrhage [Unknown]
  - Aphasia [Unknown]
  - Drug ineffective for unapproved indication [Unknown]
  - Off label use [Unknown]
